FAERS Safety Report 12676647 (Version 3)
Quarter: 2016Q4

REPORT INFORMATION
  Report Type: Spontaneous
  Country: US (occurrence: US)
  Receive Date: 20160823
  Receipt Date: 20161122
  Transmission Date: 20170207
  Serious: No
  Sender: FDA-Public Use
  Company Number: PHEH2016US020788

PATIENT
  Sex: Male

DRUGS (3)
  1. COUMADIN [Concomitant]
     Active Substance: WARFARIN SODIUM
     Indication: FACTOR V LEIDEN MUTATION
     Route: 065
  2. TRIMIX [Concomitant]
     Active Substance: ALPROSTADIL\PAPAVERINE\PHENTOLAMINE
     Indication: HIV INFECTION
     Route: 065
  3. COSENTYX [Suspect]
     Active Substance: SECUKINUMAB
     Indication: PRODUCT USED FOR UNKNOWN INDICATION
     Dosage: 2 DF, EVERY 3 WEEKS
     Route: 065

REACTIONS (7)
  - Needle issue [Unknown]
  - Injection site discolouration [Unknown]
  - Drug prescribing error [Unknown]
  - Incorrect dose administered by device [Unknown]
  - Injection site mass [Unknown]
  - Device issue [Unknown]
  - Injection site reaction [Unknown]
